FAERS Safety Report 10751960 (Version 2)
Quarter: 2015Q1

REPORT INFORMATION
  Report Type: Spontaneous
  Country: US (occurrence: US)
  Receive Date: 20150130
  Receipt Date: 20150206
  Transmission Date: 20150721
  Serious: Yes (Other)
  Sender: FDA-Public Use
  Company Number: US-ENDO PHARMACEUTICALS INC.-FORT20140241

PATIENT
  Sex: Male
  Weight: 70.82 kg

DRUGS (4)
  1. FORTESTA [Suspect]
     Active Substance: TESTOSTERONE
     Route: 065
  2. FORTESTA [Suspect]
     Active Substance: TESTOSTERONE
     Indication: PRIMARY HYPOGONADISM
     Route: 061
  3. DEPO-TESTOSTERONE [Suspect]
     Active Substance: TESTOSTERONE CYPIONATE
     Indication: PRIMARY HYPOGONADISM
     Route: 030
  4. DEPO-TESTOSTERONE [Suspect]
     Active Substance: TESTOSTERONE CYPIONATE
     Route: 065

REACTIONS (12)
  - Confusional state [Not Recovered/Not Resolved]
  - Depression [Recovering/Resolving]
  - Headache [Unknown]
  - Somnolence [Unknown]
  - Judgement impaired [Unknown]
  - Anger [Recovering/Resolving]
  - Affect lability [Recovering/Resolving]
  - Mania [Unknown]
  - Impaired work ability [Unknown]
  - Thinking abnormal [Recovered/Resolved]
  - Disinhibition [Unknown]
  - Crying [Unknown]
